FAERS Safety Report 4360672-7 (Version None)
Quarter: 2004Q2

REPORT INFORMATION
  Report Type: 
  Country: None (occurrence: None)
  Receive Date: 20040519
  Receipt Date: 20040519
  Transmission Date: 20050107
  Serious: No
  Sender: FDA-Public Use
  Company Number: None

PATIENT
  Age: 26 Year
  Sex: Male

DRUGS (1)
  1. AUGMENTIN '500' [Suspect]
     Indication: PROPHYLAXIS
     Dosage: 1 TAB PO QD
     Route: 048
     Dates: start: 20040116, end: 20040118

REACTIONS (2)
  - PRURITUS [None]
  - RASH [None]
